FAERS Safety Report 16936594 (Version 2)
Quarter: 2019Q4

REPORT INFORMATION
  Report Type: Report from Study
  Country: US (occurrence: US)
  Receive Date: 20191018
  Receipt Date: 20191120
  Transmission Date: 20200122
  Serious: Yes (Other)
  Sender: FDA-Public Use
  Company Number: US-PFIZER INC-2019446523

PATIENT
  Age: 61 Year
  Sex: Female

DRUGS (1)
  1. XELJANZ XR [Suspect]
     Active Substance: TOFACITINIB CITRATE
     Indication: RHEUMATOID ARTHRITIS
     Dosage: 11 MG, 1X/DAY(ONCE DAILY)
     Route: 048
     Dates: start: 20190923, end: 20191013

REACTIONS (7)
  - Drug hypersensitivity [Unknown]
  - Dyspnoea [Unknown]
  - Sinusitis [Unknown]
  - Eye swelling [Unknown]
  - Weight increased [Unknown]
  - Peripheral swelling [Unknown]
  - Nasal congestion [Unknown]

NARRATIVE: CASE EVENT DATE: 2019
